FAERS Safety Report 5894204-9 (Version None)
Quarter: 2008Q3

REPORT INFORMATION
  Report Type: 
  Country: None (occurrence: None)
  Receive Date: 20080922
  Receipt Date: 20080915
  Transmission Date: 20090109
  Serious: Yes (Hospitalization)
  Sender: FDA-Public Use
  Company Number: D-08-0062

PATIENT
  Age: 94 Year
  Sex: Female

DRUGS (13)
  1. JANTOVEN [Suspect]
     Indication: DEEP VEIN THROMBOSIS
     Dates: start: 20080601, end: 20080701
  2. TIMOLOL [Concomitant]
  3. BUMETANIDE [Concomitant]
  4. POTASSIUM CHLORIDE [Concomitant]
  5. CITALOPRAM [Concomitant]
  6. NITROGLYCERIN [Concomitant]
  7. FERROUS SULFATE [Concomitant]
  8. XALATAN [Concomitant]
  9. DOCUSATE SODIUM [Concomitant]
  10. LABETALOL HCL [Concomitant]
  11. NEXIUM [Concomitant]
  12. MULTI-VITAMIN [Concomitant]
  13. RESCOURCE 2.0 [Concomitant]

REACTIONS (3)
  - INTERNATIONAL NORMALISED RATIO INCREASED [None]
  - PROTHROMBIN TIME PROLONGED [None]
  - SKIN LACERATION [None]
